FAERS Safety Report 9097944 (Version 1)
Quarter: 2013Q1

REPORT INFORMATION
  Report Type: Spontaneous
  Country: US (occurrence: US)
  Receive Date: 20130212
  Receipt Date: 20130212
  Transmission Date: 20140127
  Serious: No
  Sender: FDA-Public Use
  Company Number: US-PFIZER INC-2013051476

PATIENT
  Sex: Female
  Weight: 90.7 kg

DRUGS (6)
  1. PREMARIN [Suspect]
     Indication: HORMONE REPLACEMENT THERAPY
     Dosage: 1.25 MG, 1X/DAY
     Dates: start: 1980
  2. PREMARIN [Suspect]
     Indication: DEPRESSION
     Dosage: UNK (SPLITTING THE 0.625MG TABLET IN HALF)
     Dates: start: 1990
  3. PREMARIN [Suspect]
     Indication: ANXIETY
  4. TRIAMTERENE [Concomitant]
     Indication: HYPERTENSION
     Dosage: UNK (SPLITTING 75MG TABLET), 1X/DAY
  5. LISINOPRIL [Concomitant]
     Indication: HYPERTENSION
     Dosage: UNK (SPLITTING 20MG IN HALF), 1X/DAY
  6. ACETYLSALICYLIC ACID [Concomitant]
     Dosage: UNK

REACTIONS (2)
  - Depression [Recovered/Resolved]
  - Anxiety [Recovered/Resolved]
